FAERS Safety Report 11483603 (Version 1)
Quarter: 2015Q3

REPORT INFORMATION
  Report Type: Spontaneous
  Country: US (occurrence: US)
  Receive Date: 20150903
  Receipt Date: 20150903
  Transmission Date: 20151125
  Serious: No
  Sender: FDA-Public Use
  Company Number: US-ELI_LILLY_AND_COMPANY-US201207003836

PATIENT
  Sex: Male

DRUGS (2)
  1. LYRICA [Concomitant]
     Active Substance: PREGABALIN
     Indication: MUSCULOSKELETAL DISCOMFORT
  2. CYMBALTA [Suspect]
     Active Substance: DULOXETINE HYDROCHLORIDE
     Indication: NEURALGIA
     Dosage: 60 MG, UNK

REACTIONS (7)
  - Visual impairment [Unknown]
  - Dysgeusia [Unknown]
  - Blood cholesterol abnormal [Unknown]
  - Neuralgia [Unknown]
  - Poor quality sleep [Unknown]
  - Memory impairment [Unknown]
  - Restlessness [Unknown]
